FAERS Safety Report 7663451-8 (Version None)
Quarter: 2011Q3

REPORT INFORMATION
  Report Type: 
  Country: None (occurrence: None)
  Receive Date: 20110805
  Receipt Date: 20100908
  Transmission Date: 20111222
  Serious: No
  Sender: FDA-Public Use
  Company Number: US-ABBOTT-10P-163-0670056-00

PATIENT
  Sex: Female

DRUGS (1)
  1. NIASPAN [Suspect]
     Indication: HIGH DENSITY LIPOPROTEIN DECREASED
     Dosage: DAILY AT BEDTIME
     Dates: start: 20100906

REACTIONS (5)
  - FLUSHING [None]
  - PYREXIA [None]
  - INFLUENZA LIKE ILLNESS [None]
  - SLEEP DISORDER [None]
  - SOMNOLENCE [None]
